FAERS Safety Report 21867638 (Version 3)
Quarter: 2023Q1

REPORT INFORMATION
  Report Type: Spontaneous
  Country: RU (occurrence: RU)
  Receive Date: 20230116
  Receipt Date: 20230306
  Transmission Date: 20230418
  Serious: Yes (Other)
  Sender: FDA-Public Use
  Company Number: RU-MLMSERVICE-20230104-4010197-1

PATIENT
  Age: 11 Year
  Sex: Female
  Weight: 32.2 kg

DRUGS (33)
  1. ENALAPRIL [Interacting]
     Active Substance: ENALAPRIL
     Indication: Product used for unknown indication
     Route: 065
     Dates: start: 201804
  2. CYCLOSPORINE [Interacting]
     Active Substance: CYCLOSPORINE
     Indication: Henoch-Schonlein purpura
     Route: 065
     Dates: start: 201804, end: 201806
  3. CYCLOSPORINE [Interacting]
     Active Substance: CYCLOSPORINE
     Indication: Glomerulonephritis chronic
     Route: 065
     Dates: start: 20180614, end: 20180615
  4. CYCLOSPORINE [Interacting]
     Active Substance: CYCLOSPORINE
     Route: 065
     Dates: start: 20180615, end: 20180620
  5. CYCLOSPORINE [Interacting]
     Active Substance: CYCLOSPORINE
     Route: 065
     Dates: start: 20180621, end: 20180707
  6. RIFAMPIN [Suspect]
     Active Substance: RIFAMPIN
     Indication: Tuberculosis
     Route: 042
     Dates: start: 20180601, end: 20180618
  7. RIFAMPIN [Suspect]
     Active Substance: RIFAMPIN
     Dosage: DOSE REDUCE
     Route: 065
     Dates: start: 20180619, end: 20180626
  8. SPIRONOLACTONE [Interacting]
     Active Substance: SPIRONOLACTONE
     Indication: Product used for unknown indication
     Route: 065
     Dates: start: 201804
  9. DIPYRIDAMOLE [Concomitant]
     Active Substance: DIPYRIDAMOLE
     Indication: Henoch-Schonlein purpura
     Route: 065
     Dates: start: 20180307, end: 20180329
  10. DIPYRIDAMOLE [Concomitant]
     Active Substance: DIPYRIDAMOLE
     Indication: Nephrotic syndrome
  11. PENTOXIFYLLINE [Concomitant]
     Active Substance: PENTOXIFYLLINE
     Indication: Henoch-Schonlein purpura
     Route: 065
     Dates: start: 20180307, end: 20180329
  12. PENTOXIFYLLINE [Concomitant]
     Active Substance: PENTOXIFYLLINE
     Indication: Nephrotic syndrome
  13. PREDNISOLONE [Concomitant]
     Active Substance: PREDNISOLONE
     Indication: Henoch-Schonlein purpura
     Dosage: 2 MG/KG/DAY
     Route: 065
     Dates: start: 20180402, end: 201804
  14. PREDNISOLONE [Concomitant]
     Active Substance: PREDNISOLONE
     Indication: Glomerulonephritis chronic
     Dosage: REDUCED
     Route: 065
     Dates: start: 201804
  15. METHYLPREDNISOLONE [Concomitant]
     Active Substance: METHYLPREDNISOLONE
     Indication: Proteinuria
     Route: 065
     Dates: start: 20180411, end: 20180413
  16. METHYLPREDNISOLONE [Concomitant]
     Active Substance: METHYLPREDNISOLONE
     Indication: Weight increased
     Dosage: PULSE THERAPY, EVERY OTHER DAY
     Route: 065
     Dates: start: 20180609
  17. METHYLPREDNISOLONE [Concomitant]
     Active Substance: METHYLPREDNISOLONE
     Indication: Hypoproteinaemia
  18. OMEPRAZOLE [Concomitant]
     Active Substance: OMEPRAZOLE
     Indication: Product used for unknown indication
     Route: 065
     Dates: start: 201804
  19. URSODIOL [Concomitant]
     Active Substance: URSODIOL
     Indication: Product used for unknown indication
     Route: 065
     Dates: start: 201804
  20. LEVOFLOXACIN [Concomitant]
     Active Substance: LEVOFLOXACIN
     Indication: Tuberculosis
     Route: 042
     Dates: start: 20180601
  21. BROMHEXINE [Concomitant]
     Active Substance: BROMHEXINE
     Indication: Product used for unknown indication
     Route: 065
     Dates: start: 2018
  22. MAGNESIUM ASPARTATE\POTASSIUM ASPARTATE [Concomitant]
     Active Substance: MAGNESIUM ASPARTATE\POTASSIUM ASPARTATE
     Indication: Product used for unknown indication
     Route: 065
     Dates: start: 2018
  23. CALCIUM CARBONATE\CHOLECALCIFEROL [Concomitant]
     Active Substance: CALCIUM CARBONATE\CHOLECALCIFEROL
     Indication: Product used for unknown indication
     Route: 065
     Dates: start: 2018
  24. CLARITHROMYCIN [Concomitant]
     Active Substance: CLARITHROMYCIN
     Indication: Bronchitis
     Route: 065
     Dates: start: 2018
  25. FENOTEROL\IPRATROPIUM BROMIDE [Concomitant]
     Active Substance: FENOTEROL\IPRATROPIUM BROMIDE
     Indication: Bronchitis
     Dosage: BRONCHODILATORS
     Route: 055
     Dates: start: 2018, end: 201806
  26. DIOXYDINE [Concomitant]
     Active Substance: DIOXYDINE
     Indication: Bronchitis
     Dosage: HYDROXYMETHYLQUINOXA LINDIOXIDE (DIOXIDINE), INTRANASAL
     Route: 045
     Dates: start: 2018, end: 201806
  27. DIAZEPAM [Concomitant]
     Active Substance: DIAZEPAM
     Indication: Seizure
     Route: 065
     Dates: start: 20180601
  28. AMLODIPINE [Concomitant]
     Active Substance: AMLODIPINE BESYLATE
     Indication: Hypertension
     Route: 065
     Dates: start: 20180601
  29. LOSARTAN [Concomitant]
     Active Substance: LOSARTAN
     Indication: Hypertension
     Route: 065
     Dates: start: 20180601
  30. HEPARIN [Concomitant]
     Active Substance: HEPARIN SODIUM
     Indication: Cerebral ischaemia
     Route: 042
     Dates: start: 20180601, end: 20180605
  31. HEPARIN [Concomitant]
     Active Substance: HEPARIN SODIUM
     Route: 058
     Dates: start: 20180605
  32. SULFAMETHOXAZOLE\TRIMETHOPRIM [Concomitant]
     Active Substance: SULFAMETHOXAZOLE\TRIMETHOPRIM
     Indication: Pneumocystis jirovecii pneumonia
     Route: 065
     Dates: start: 20180605, end: 20180618
  33. VALPROIC ACID [Concomitant]
     Active Substance: VALPROIC ACID
     Indication: Epilepsy
     Route: 065
     Dates: start: 201806

REACTIONS (2)
  - Blood potassium increased [Recovered/Resolved]
  - Drug interaction [Recovered/Resolved]

NARRATIVE: CASE EVENT DATE: 20180101
